FAERS Safety Report 5252503-8 (Version None)
Quarter: 2007Q1

REPORT INFORMATION
  Report Type: 
  Country: None (occurrence: None)
  Receive Date: 20070301
  Receipt Date: 20070104
  Transmission Date: 20070707
  Serious: Yes (Hospitalization, Other)
  Sender: FDA-Public Use
  Company Number: US-BRISTOL-MYERS SQUIBB COMPANY-13632799

PATIENT
  Age: 45 Year
  Sex: Male
  Weight: 107 kg

DRUGS (6)
  1. ERBITUX [Suspect]
     Indication: COLON CANCER METASTATIC
     Route: 042
     Dates: start: 20070102, end: 20070102
  2. RESTORIL [Concomitant]
  3. TRAZODONE HCL [Concomitant]
  4. QVAR 40 [Concomitant]
  5. ALBUTEROL [Concomitant]
  6. BENADRYL [Concomitant]
     Indication: PREMEDICATION

REACTIONS (1)
  - HEADACHE [None]
